FAERS Safety Report 6233468-9 (Version None)
Quarter: 2009Q2

REPORT INFORMATION
  Report Type: 
  Country: None (occurrence: None)
  Receive Date: 20090617
  Receipt Date: 20090610
  Transmission Date: 20091009
  Serious: Yes (Life-Threatening, Disabling, Other)
  Sender: FDA-Public Use
  Company Number: GB-ELI_LILLY_AND_COMPANY-GB200906002545

PATIENT
  Age: 54 Year
  Sex: Female
  Weight: 118 kg

DRUGS (8)
  1. BYETTA [Suspect]
     Indication: DIABETES MELLITUS
     Dosage: 5 UG, 2/D
     Route: 058
     Dates: start: 20090320, end: 20090328
  2. ACTOS [Concomitant]
     Dosage: 30 MG, UNK
     Route: 048
     Dates: start: 20080101
  3. PIOGLITAZONE [Concomitant]
     Dosage: 30 MG, UNK
     Route: 048
     Dates: start: 20080101
  4. AMLODIPINE [Concomitant]
     Dosage: 10 MG, UNK
     Route: 048
  5. CANDESARTAN [Concomitant]
     Dosage: 16 MG, DAILY (1/D)
     Route: 048
     Dates: start: 20001122
  6. METFORMIN HCL [Concomitant]
     Dosage: 1 G, 2/D
     Route: 048
     Dates: start: 20060101
  7. REPAGLINIDE [Concomitant]
     Dosage: 2 MG, 3/D
     Route: 048
     Dates: start: 20010726
  8. SIMVASTATIN [Concomitant]
     Dosage: 20 MG, DAILY (1/D)
     Route: 048
     Dates: start: 20000929

REACTIONS (3)
  - DYSPHAGIA [None]
  - OROPHARYNGEAL PAIN [None]
  - SWOLLEN TONGUE [None]
